FAERS Safety Report 5976268-7 (Version None)
Quarter: 2008Q4

REPORT INFORMATION
  Report Type: 
  Country: None (occurrence: None)
  Receive Date: 20081202
  Receipt Date: 20081125
  Transmission Date: 20090506
  Serious: Yes (Life-Threatening, Hospitalization, Other)
  Sender: FDA-Public Use
  Company Number: US-ASTRAZENECA-2008UW22553

PATIENT
  Age: 23253 Day
  Sex: Female

DRUGS (10)
  1. ESOMEPRAZOLE MAGNESIUM [Suspect]
     Indication: GASTROOESOPHAGEAL REFLUX DISEASE
     Route: 048
     Dates: start: 20080930, end: 20080930
  2. OMEPRAZOLE [Concomitant]
     Indication: GASTROOESOPHAGEAL REFLUX DISEASE
     Route: 048
     Dates: start: 19990101, end: 20080905
  3. LISINOPRIL [Concomitant]
     Route: 048
     Dates: start: 20060101, end: 20081001
  4. COZAAR [Concomitant]
     Dates: start: 20060101, end: 20081001
  5. GLIPIZIDE [Concomitant]
     Dates: start: 20060101
  6. CALCITRIOL [Concomitant]
     Indication: SUPPLEMENTATION THERAPY
     Route: 048
     Dates: start: 20060101
  7. FISH OIL [Concomitant]
     Indication: SUPPLEMENTATION THERAPY
     Dosage: 4 TABLETS
     Dates: start: 19980101
  8. CAL-MAG-ZINC [Concomitant]
     Indication: SUPPLEMENTATION THERAPY
     Dates: start: 19900101
  9. PROPOFOL [Concomitant]
     Indication: ANAESTHESIA
     Route: 042
     Dates: start: 20080926, end: 20080926
  10. LIDOCAINE [Concomitant]
     Indication: ANAESTHESIA
     Route: 042
     Dates: start: 20080926, end: 20080926

REACTIONS (2)
  - ACUTE MYOCARDIAL INFARCTION [None]
  - CORONARY ARTERY DISEASE [None]
